FAERS Safety Report 6381529-6 (Version None)
Quarter: 2009Q3

REPORT INFORMATION
  Report Type: 
  Country: None (occurrence: None)
  Receive Date: 20090925
  Receipt Date: 20090922
  Transmission Date: 20100115
  Serious: Yes (Other)
  Sender: FDA-Public Use
  Company Number: ADR30382009

PATIENT
  Age: 59 Year
  Sex: Male

DRUGS (3)
  1. SIMVASTATIN [Suspect]
     Dosage: ORAL
     Route: 048
  2. LISINOPRIL [Suspect]
  3. INSULIN [Concomitant]

REACTIONS (1)
  - HYPOGLYCAEMIA [None]
